FAERS Safety Report 9791937 (Version 1)
Quarter: 2014Q1

REPORT INFORMATION
  Report Type: Spontaneous
  Country: US (occurrence: US)
  Receive Date: 20140102
  Receipt Date: 20140102
  Transmission Date: 20141002
  Serious: No
  Sender: FDA-Public Use
  Company Number: US-PFIZER INC-2013374452

PATIENT
  Age: 58 Year
  Sex: Female
  Weight: 104 kg

DRUGS (9)
  1. LYRICA [Suspect]
     Indication: FIBROMYALGIA
     Dosage: 150 MG, 2X/DAY
  2. LISINOPRIL [Concomitant]
     Indication: HYPERTENSION
     Dosage: 10 MG, UNK
  3. SIMVASTATIN [Concomitant]
     Indication: BLOOD CHOLESTEROL INCREASED
     Dosage: 20 MG, UNK
  4. CYMBALTA [Concomitant]
     Dosage: 20 MG, DAILY AT BED TIME
  5. ZOLPIDEM [Concomitant]
     Indication: SLEEP DISORDER
     Dosage: 10 MG, UNK
  6. MORPHINE [Concomitant]
     Dosage: 50 MG, 2X/DAY
  7. CLONAZEPAM [Concomitant]
     Indication: ANXIETY
     Dosage: 0.5 MG, UNK
  8. BACLOFEN [Concomitant]
     Indication: MUSCLE SPASMS
     Dosage: 10 MG, UNK
  9. ASPIRIN [Concomitant]
     Dosage: UNK

REACTIONS (1)
  - Weight increased [Unknown]
